APPROVED DRUG PRODUCT: FUROSEMIDE
Active Ingredient: FUROSEMIDE
Strength: 10MG/ML
Dosage Form/Route: INJECTABLE;INJECTION
Application: N018670 | Product #001
Applicant: WYETH AYERST LABORATORIES
Approved: Jul 20, 1982 | RLD: No | RS: No | Type: DISCN